FAERS Safety Report 12775187 (Version 1)
Quarter: 2016Q3

REPORT INFORMATION
  Report Type: Spontaneous
  Country: BE (occurrence: BE)
  Receive Date: 20160923
  Receipt Date: 20160923
  Transmission Date: 20161109
  Serious: Yes (Other)
  Sender: FDA-Public Use
  Company Number: BE-AMGEN-BELSP2016127713

PATIENT
  Age: 59 Year
  Sex: Male

DRUGS (3)
  1. XGEVA [Suspect]
     Active Substance: DENOSUMAB
     Indication: PROSTATE CANCER
     Dosage: UNK
     Route: 065
  2. XGEVA [Suspect]
     Active Substance: DENOSUMAB
     Indication: METASTASES TO BONE
  3. FIRMAGON [Concomitant]
     Active Substance: DEGARELIX ACETATE
     Route: 065

REACTIONS (3)
  - Prostatic specific antigen decreased [Not Recovered/Not Resolved]
  - Hypercalcaemia [Unknown]
  - Epilepsy [Unknown]

NARRATIVE: CASE EVENT DATE: 201608
